FAERS Safety Report 18669933 (Version 1)
Quarter: 2020Q4

REPORT INFORMATION
  Report Type: Report from Study
  Country: TW (occurrence: TW)
  Receive Date: 20201228
  Receipt Date: 20201228
  Transmission Date: 20210114
  Serious: Yes (Hospitalization)
  Sender: FDA-Public Use
  Company Number: TW-JNJFOC-20200812945

PATIENT
  Age: 57 Year
  Sex: Female
  Weight: 51 kg

DRUGS (68)
  1. ENOXAPARIN [Concomitant]
     Active Substance: ENOXAPARIN
     Indication: PROPHYLAXIS
     Dosage: DAILY
     Route: 058
     Dates: start: 20200805, end: 20200805
  2. KETAMINE [Concomitant]
     Active Substance: KETAMINE
     Indication: SUPPORTIVE CARE
     Dosage: DAILY
     Route: 042
     Dates: start: 20200805, end: 20200805
  3. ALPRAZOLAM. [Concomitant]
     Active Substance: ALPRAZOLAM
     Route: 048
     Dates: start: 20200806, end: 20200807
  4. CLONAZEPAM. [Concomitant]
     Active Substance: CLONAZEPAM
     Indication: INSOMNIA
     Route: 048
     Dates: start: 20200814, end: 20200817
  5. ESOMEPRAZOLE MAGNESIUM. [Concomitant]
     Active Substance: ESOMEPRAZOLE MAGNESIUM
     Indication: ABDOMINAL DISCOMFORT
     Route: 048
     Dates: start: 20200902, end: 20200916
  6. ERTAPENEM SODIUM [Concomitant]
     Active Substance: ERTAPENEM SODIUM
     Indication: URINARY TRACT INFECTION
     Route: 042
     Dates: start: 20200920, end: 20200924
  7. PILOCARPINE. [Concomitant]
     Active Substance: PILOCARPINE
     Route: 048
     Dates: start: 20121227, end: 20200804
  8. PILOCARPINE. [Concomitant]
     Active Substance: PILOCARPINE
     Route: 048
     Dates: start: 20200815
  9. PREDNISOLONE. [Concomitant]
     Active Substance: PREDNISOLONE
     Route: 048
     Dates: start: 20190321, end: 20200805
  10. AMLODIPINE [Concomitant]
     Active Substance: AMLODIPINE BESYLATE
     Indication: HYPERTENSION
     Route: 048
     Dates: start: 20200421, end: 20200916
  11. HYDROXYCHLOROQUINE [Concomitant]
     Active Substance: HYDROXYCHLOROQUINE
     Route: 048
     Dates: start: 20030122, end: 20200804
  12. BUCLIZINE [Concomitant]
     Active Substance: BUCLIZINE
     Indication: SUPPORTIVE CARE
     Route: 048
     Dates: start: 20200808, end: 20200812
  13. SENNAPUR [Concomitant]
     Route: 048
     Dates: start: 20200806, end: 20200909
  14. ESOMEPRAZOLE. [Concomitant]
     Active Substance: ESOMEPRAZOLE MAGNESIUM
     Indication: ABDOMINAL DISCOMFORT
     Route: 048
     Dates: start: 20200807, end: 20200813
  15. ACETAMINOPHEN. [Concomitant]
     Active Substance: ACETAMINOPHEN
     Route: 048
     Dates: start: 20200812, end: 20200817
  16. LORAZEPAM. [Concomitant]
     Active Substance: LORAZEPAM
     Indication: INSOMNIA
     Route: 048
     Dates: start: 20200812
  17. NYSTATIN. [Concomitant]
     Active Substance: NYSTATIN
     Route: 048
     Dates: start: 20200815
  18. SENNOSIDE [Concomitant]
     Active Substance: SENNOSIDES
     Indication: CONSTIPATION PROPHYLAXIS
     Dates: start: 20200806, end: 20200909
  19. USTEKINUMAB [Suspect]
     Active Substance: USTEKINUMAB
     Route: 058
     Dates: start: 20200519
  20. DENOSUMAB [Concomitant]
     Active Substance: DENOSUMAB
     Indication: OSTEOPOROSIS
     Route: 058
     Dates: start: 20170216
  21. HYDROXYCHLOROQUINE [Concomitant]
     Active Substance: HYDROXYCHLOROQUINE
     Route: 048
     Dates: start: 20200812, end: 20200818
  22. OSELTAMIVIR [Concomitant]
     Active Substance: OSELTAMIVIR
     Indication: ANTIVIRAL PROPHYLAXIS
     Route: 048
     Dates: start: 20200804, end: 20200809
  23. LEFLUNOMIDE. [Concomitant]
     Active Substance: LEFLUNOMIDE
     Route: 048
     Dates: start: 20200808
  24. SEVATRIM [Concomitant]
     Active Substance: SULFAMETHOXAZOLE\TRIMETHOPRIM
     Indication: PNEUMONIA
     Dosage: EVERY 8 HOUR?PER DAY
     Route: 042
     Dates: start: 20200805, end: 20200808
  25. BETAMETHASONE VALERATE. [Concomitant]
     Active Substance: BETAMETHASONE VALERATE
     Dosage: 1 UNIT
     Route: 048
     Dates: start: 20200810, end: 20200811
  26. BETHANECHOL [Concomitant]
     Active Substance: BETHANECHOL
     Route: 048
     Dates: start: 20200826, end: 20200830
  27. CB                                 /01734801/ [Concomitant]
     Dosage: 1 APPLICATION
     Route: 061
     Dates: start: 20200913
  28. PREDNISOLONE. [Concomitant]
     Active Substance: PREDNISOLONE
     Route: 048
     Dates: start: 20200906
  29. DILTIAZEM. [Concomitant]
     Active Substance: DILTIAZEM
     Indication: HYPERTENSION
     Route: 048
     Dates: start: 20200121, end: 20200916
  30. AMLODIPINE [Concomitant]
     Active Substance: AMLODIPINE BESYLATE
     Route: 048
     Dates: start: 20200811
  31. FLAVOXATE [Concomitant]
     Active Substance: FLAVOXATE
     Indication: HYPERTONIC BLADDER
     Route: 048
     Dates: start: 20120419
  32. FENTANYL. [Concomitant]
     Active Substance: FENTANYL
     Indication: SUPPORTIVE CARE
     Dosage: DAILY
     Route: 042
     Dates: start: 20200805, end: 20200811
  33. FUROSEMIDE. [Concomitant]
     Active Substance: FUROSEMIDE
     Indication: SUPPORTIVE CARE
     Dosage: DAILY
     Route: 042
     Dates: start: 20200805, end: 20200805
  34. BISACODYL. [Concomitant]
     Active Substance: BISACODYL
     Indication: CONSTIPATION PROPHYLAXIS
     Dosage: EVERY THREE?DAYS
     Route: 054
     Dates: start: 20200806, end: 20200809
  35. PROPOFOL. [Concomitant]
     Active Substance: PROPOFOL
     Indication: SUPPORTIVE CARE
     Route: 042
     Dates: start: 20200805, end: 20200810
  36. USTEKINUMAB [Suspect]
     Active Substance: USTEKINUMAB
     Indication: SYSTEMIC LUPUS ERYTHEMATOSUS
     Route: 058
     Dates: start: 20190618
  37. CELECOXIB. [Concomitant]
     Active Substance: CELECOXIB
     Route: 048
     Dates: start: 20190214
  38. BUMETANIDE. [Concomitant]
     Active Substance: BUMETANIDE
     Indication: SUPPORTIVE CARE
     Route: 042
     Dates: start: 20200805, end: 20200806
  39. FUROSEMIDE. [Concomitant]
     Active Substance: FUROSEMIDE
     Dosage: DAILY
     Route: 042
     Dates: start: 20200806, end: 20200807
  40. METHYLPREDNISOLONE. [Concomitant]
     Active Substance: METHYLPREDNISOLONE
     Dosage: EVERY 6 HOURS?PER DAY
     Route: 042
     Dates: start: 20200810, end: 20200812
  41. CALCIUM POLYSTYRENE SULFONATE [Concomitant]
     Active Substance: CALCIUM POLYSTYRENE SULFONATE
     Indication: SUPPORTIVE CARE
     Route: 048
     Dates: start: 20200809, end: 20200810
  42. SENNAPUR [Concomitant]
     Indication: CONSTIPATION PROPHYLAXIS
     Route: 048
     Dates: start: 20200806, end: 20200826
  43. TOFACITINIB [Concomitant]
     Active Substance: TOFACITINIB
     Route: 048
     Dates: start: 20200810, end: 20200816
  44. LOSARTAN. [Concomitant]
     Active Substance: LOSARTAN
     Indication: HYPERTENSION
     Route: 048
     Dates: start: 20200909
  45. HYDROXYCHLOROQUINE [Concomitant]
     Active Substance: HYDROXYCHLOROQUINE
     Route: 048
     Dates: start: 20200805, end: 20200811
  46. METHYLPREDNISOLONE. [Concomitant]
     Active Substance: METHYLPREDNISOLONE
     Dosage: EVERY 6 HOURS?PER DAY
     Route: 042
     Dates: start: 20200818, end: 20200822
  47. METHYLPREDNISOLONE. [Concomitant]
     Active Substance: METHYLPREDNISOLONE
     Route: 042
     Dates: start: 20200907, end: 20200911
  48. DIPHENHYDRAMINE. [Concomitant]
     Active Substance: DIPHENHYDRAMINE
     Indication: PROPHYLAXIS
     Route: 042
     Dates: start: 20200807, end: 20200809
  49. ESTAZOLAM. [Concomitant]
     Active Substance: ESTAZOLAM
     Route: 048
     Dates: start: 20200908
  50. SERTACONAZOLE NITRATE [Concomitant]
     Active Substance: SERTACONAZOLE NITRATE
     Dosage: 1 UNIT
     Route: 061
     Dates: start: 20200807
  51. ENTEROCOCCUS FAECALIS [Concomitant]
     Active Substance: ENTEROCOCCUS FAECALIS
     Indication: ABDOMINAL DISCOMFORT
     Route: 048
     Dates: start: 20200911
  52. MEROPENEM TRIHYDRATE [Concomitant]
     Active Substance: MEROPENEM
     Indication: URINARY TRACT INFECTION
     Route: 042
     Dates: start: 20200920, end: 20200920
  53. MECOBALAMIN [Concomitant]
     Active Substance: METHYLCOBALAMIN
     Indication: GASTROINTESTINAL DISORDER THERAPY
     Route: 030
     Dates: start: 20161027
  54. PILOCARPINE. [Concomitant]
     Active Substance: PILOCARPINE
     Route: 048
     Dates: start: 20200805, end: 20200814
  55. PREDNISOLONE. [Concomitant]
     Active Substance: PREDNISOLONE
     Route: 048
     Dates: start: 20200828, end: 20200906
  56. CISATRACURIUM. [Concomitant]
     Active Substance: CISATRACURIUM
     Indication: SUPPORTIVE CARE
     Route: 042
     Dates: start: 20200805, end: 20200806
  57. METHYLPREDNISOLONE. [Concomitant]
     Active Substance: METHYLPREDNISOLONE
     Route: 042
     Dates: start: 20200805, end: 20200810
  58. SUCCINYLCHOLINE [Concomitant]
     Active Substance: SUCCINYLCHOLINE
     Indication: SUPPORTIVE CARE
     Route: 042
     Dates: start: 20200805, end: 20200805
  59. ALPRAZOLAM. [Concomitant]
     Active Substance: ALPRAZOLAM
     Indication: SUPPORTIVE CARE
     Route: 048
     Dates: start: 20200808, end: 20200811
  60. ACICLOVIR [Concomitant]
     Active Substance: ACYCLOVIR
     Dosage: 1 DROP
     Route: 061
     Dates: start: 20200816, end: 20200822
  61. ULTRACET [Concomitant]
     Active Substance: ACETAMINOPHEN\TRAMADOL HYDROCHLORIDE
     Indication: SPINAL COMPRESSION FRACTURE
     Dosage: 1 OTHER
     Route: 048
     Dates: start: 20161107
  62. FERRIC HYDROXIDE POLYMALTOSE [Concomitant]
     Active Substance: IRON POLYMALTOSE
     Indication: IRON DEFICIENCY ANAEMIA
     Route: 048
     Dates: start: 20060922
  63. FUROSEMIDE. [Concomitant]
     Active Substance: FUROSEMIDE
     Dosage: DAILY
     Route: 048
     Dates: start: 20200914
  64. LEFLUNOMIDE. [Concomitant]
     Active Substance: LEFLUNOMIDE
     Dosage: EVERY OTHER DAY
     Route: 048
     Dates: start: 20200805, end: 20200807
  65. METHYLPREDNISOLONE. [Concomitant]
     Active Substance: METHYLPREDNISOLONE
     Dosage: EVERY 6 HOURS?PER DAY
     Route: 042
     Dates: start: 20200813, end: 20200817
  66. METHYLPREDNISOLONE. [Concomitant]
     Active Substance: METHYLPREDNISOLONE
     Dosage: EVERY 6 HOURS?PER DAY
     Route: 042
     Dates: start: 20200822, end: 20200828
  67. BETHANECHOL [Concomitant]
     Active Substance: BETHANECHOL
     Indication: URINARY RETENTION
     Dosage: 50 MICROGRAM
     Route: 048
     Dates: start: 20200815, end: 20200816
  68. ESTAZOLAM. [Concomitant]
     Active Substance: ESTAZOLAM
     Indication: INSOMNIA
     Route: 048
     Dates: start: 20200817, end: 20200907

REACTIONS (1)
  - Pneumonia [Recovered/Resolved]

NARRATIVE: CASE EVENT DATE: 20200805
